FAERS Safety Report 7898336-5 (Version None)
Quarter: 2011Q4

REPORT INFORMATION
  Report Type: 
  Country: None (occurrence: None)
  Receive Date: 20111103
  Receipt Date: 20111025
  Transmission Date: 20120403
  Serious: Yes (Other)
  Sender: FDA-Public Use
  Company Number: DSM-2011-01000

PATIENT
  Sex: Male

DRUGS (2)
  1. METOPROLOL RETARD (METOPROLOL TARTRATE) [Concomitant]
  2. AMLODIPINE BESYLATE AND OLMESARTAN MEDOXOMIL [Suspect]
     Indication: HYPERTENSION
     Dosage: 20/5 MG, ORAL
     Route: 048

REACTIONS (1)
  - RETINAL DETACHMENT [None]
